FAERS Safety Report 4757611-3 (Version None)
Quarter: 2005Q3

REPORT INFORMATION
  Report Type: 
  Country: None (occurrence: None)
  Receive Date: 20050830
  Receipt Date: 20050822
  Transmission Date: 20060218
  Serious: Yes (Hospitalization, Other)
  Sender: FDA-Public Use
  Company Number: FRP05000323

PATIENT
  Age: 72 Year
  Sex: Male

DRUGS (1)
  1. ACTONEL [Suspect]
     Indication: OSTEITIS DEFORMANS
     Dosage: 30 MG, DAILY, ORAL
     Route: 048
     Dates: start: 20050401

REACTIONS (6)
  - BILE DUCT CANCER STAGE III [None]
  - BILE DUCT OBSTRUCTION [None]
  - OEDEMA PERIPHERAL [None]
  - PANCREATIC CARCINOMA STAGE III [None]
  - POST PROCEDURAL COMPLICATION [None]
  - RED BLOOD CELL COUNT DECREASED [None]
